FAERS Safety Report 5787702-X (Version None)
Quarter: 2008Q2

REPORT INFORMATION
  Report Type: 
  Country: None (occurrence: None)
  Receive Date: 20080625
  Receipt Date: 20071011
  Transmission Date: 20081010
  Serious: No
  Sender: FDA-Public Use
  Company Number: US-ASTRAZENECA-2007UW23657

PATIENT
  Sex: Male

DRUGS (1)
  1. PULMICORT-100 [Suspect]
     Indication: ASTHMA
     Dosage: .5 MG FOR 2-3 WEEKS
     Route: 055

REACTIONS (2)
  - DYSPHONIA [None]
  - PHARYNGOLARYNGEAL PAIN [None]
